FAERS Safety Report 24444578 (Version 2)
Quarter: 2024Q4

REPORT INFORMATION
  Report Type: Report from Study
  Country: US (occurrence: US)
  Receive Date: 20241016
  Receipt Date: 20241017
  Transmission Date: 20250114
  Serious: No
  Sender: ROCHE
  Company Number: US-ROCHE-2803916

PATIENT
  Age: 60 Year
  Sex: Male

DRUGS (13)
  1. RITUXAN [Suspect]
     Active Substance: RITUXIMAB
     Indication: Encephalitis
     Route: 042
  2. RITUXAN [Suspect]
     Active Substance: RITUXIMAB
     Indication: Encephalomyelitis
  3. ASPIRIN [Concomitant]
     Active Substance: ASPIRIN
  4. ATENOLOL [Concomitant]
     Active Substance: ATENOLOL
  5. LIPITOR [Concomitant]
     Active Substance: ATORVASTATIN CALCIUM
  6. MEPRON (UNITED STATES) [Concomitant]
  7. DEPAKOTE [Concomitant]
     Active Substance: DIVALPROEX SODIUM
  8. COLACE [Concomitant]
     Active Substance: DOCUSATE SODIUM
  9. ELIQUIS [Concomitant]
     Active Substance: APIXABAN
  10. FOLVITE [Concomitant]
     Active Substance: FOLIC ACID
  11. MELATONIN [Concomitant]
     Active Substance: MELATONIN
  12. DELTASONE [Concomitant]
     Active Substance: PREDNISONE
  13. SEROQUEL [Concomitant]
     Active Substance: QUETIAPINE FUMARATE

REACTIONS (2)
  - Off label use [Unknown]
  - No adverse event [Unknown]
